FAERS Safety Report 6294699-5 (Version None)
Quarter: 2009Q3

REPORT INFORMATION
  Report Type: 
  Country: None (occurrence: None)
  Receive Date: 20090803
  Receipt Date: 20090727
  Transmission Date: 20100115
  Serious: Yes (Death)
  Sender: FDA-Public Use
  Company Number: A0799782A

PATIENT
  Sex: Female
  Weight: 50 kg

DRUGS (2)
  1. SERETIDE [Suspect]
     Indication: CHRONIC OBSTRUCTIVE PULMONARY DISEASE
     Route: 055
     Dates: start: 20080601
  2. CORTISONE [Concomitant]

REACTIONS (1)
  - DEATH [None]
